FAERS Safety Report 14716360 (Version 1)
Quarter: 2018Q2

REPORT INFORMATION
  Report Type: Spontaneous
  Country: US (occurrence: US)
  Receive Date: 20180404
  Receipt Date: 20180404
  Transmission Date: 20180711
  Serious: No
  Sender: FDA-Public Use
  Company Number: US-PERRIGO-17US002149

PATIENT
  Age: 42 Year
  Sex: Male
  Weight: 99.77 kg

DRUGS (2)
  1. PSEUDOEPHEDRINE HYDROCHLORIDE. [Suspect]
     Active Substance: PSEUDOEPHEDRINE HYDROCHLORIDE
     Indication: NASAL CONGESTION
     Dosage: 120 MG, EVERY 12 HOURS, PRN
     Route: 048
     Dates: end: 20170301
  2. PSEUDOEPHEDRINE HYDROCHLORIDE. [Suspect]
     Active Substance: PSEUDOEPHEDRINE HYDROCHLORIDE
     Indication: HEADACHE
     Dosage: 240 MG, SINGLE
     Route: 048
     Dates: start: 20170302, end: 20170302

REACTIONS (5)
  - Malaise [Recovered/Resolved]
  - Incorrect dose administered [Recovered/Resolved]
  - Dyskinesia [Recovered/Resolved]
  - Drug ineffective for unapproved indication [Unknown]
  - Expired product administered [Recovered/Resolved]

NARRATIVE: CASE EVENT DATE: 20170302
